FAERS Safety Report 12979501 (Version 1)
Quarter: 2016Q4

REPORT INFORMATION
  Report Type: Report from Study
  Country: None (occurrence: US)
  Receive Date: 20161128
  Receipt Date: 20161128
  Transmission Date: 20170207
  Serious: Yes (Other)
  Sender: FDA-Public Use
  Company Number: US-ABBVIE-16P-163-1791289-00

PATIENT
  Sex: Female

DRUGS (13)
  1. SARSAPARILLA [Concomitant]
     Indication: PHYTOTHERAPY
     Route: 048
  2. VITAMIN B COMPLEX + BIOTIN [Concomitant]
     Indication: NAIL DISORDER
  3. NETTLES [Concomitant]
     Indication: PHYTOTHERAPY
     Route: 048
  4. VITAMIN D [Concomitant]
     Active Substance: CHOLECALCIFEROL
     Indication: VITAMIN SUPPLEMENTATION
     Route: 048
  5. LUPRON DEPOT [Suspect]
     Active Substance: LEUPROLIDE ACETATE
     Indication: UTERINE LEIOMYOMA
     Route: 050
     Dates: start: 201511, end: 201511
  6. MULTIVITAMIN [Concomitant]
     Active Substance: VITAMINS
     Indication: VITAMIN SUPPLEMENTATION
     Route: 048
  7. VITAMIN B COMPLEX + BIOTIN [Concomitant]
     Indication: HAIR DISORDER
     Route: 048
  8. DANDELION [Concomitant]
     Active Substance: TARAXACUM OFFICINALE POLLEN
     Indication: PHYTOTHERAPY
     Route: 048
  9. RED RASPBERRY [Concomitant]
     Indication: PHYTOTHERAPY
     Route: 048
  10. BURDOCK ROOT [Concomitant]
     Indication: PHYTOTHERAPY
     Route: 048
  11. VITAMIN B COMPLEX + BIOTIN [Concomitant]
     Indication: SKIN DISORDER
  12. VITEX BERRY [Concomitant]
     Indication: PHYTOTHERAPY
     Route: 048
  13. VITAMIN B SHOTS [Concomitant]
     Indication: PRODUCT USED FOR UNKNOWN INDICATION

REACTIONS (5)
  - Blood iron decreased [Not Recovered/Not Resolved]
  - Right ventricular failure [Not Recovered/Not Resolved]
  - Uterine leiomyoma [Not Recovered/Not Resolved]
  - Menorrhagia [Not Recovered/Not Resolved]
  - Haemoglobin decreased [Not Recovered/Not Resolved]

NARRATIVE: CASE EVENT DATE: 2015
